FAERS Safety Report 14150495 (Version 1)
Quarter: 2017Q4

REPORT INFORMATION
  Report Type: Report from Study
  Country: FR (occurrence: FR)
  Receive Date: 20171101
  Receipt Date: 20171101
  Transmission Date: 20180321
  Serious: Yes (Hospitalization, Other)
  Sender: FDA-Public Use
  Company Number: FR-JAZZ-2017-FR-008947

PATIENT

DRUGS (12)
  1. DEFITELIO [Suspect]
     Active Substance: DEFIBROTIDE SODIUM
     Indication: PROPHYLAXIS
     Dosage: 180 MG, QD
     Route: 042
     Dates: start: 20170613, end: 20170719
  2. MYCAMINE [Concomitant]
     Active Substance: MICAFUNGIN SODIUM
     Indication: ANTIFUNGAL TREATMENT
     Dosage: 14MG
     Route: 042
     Dates: start: 20170613
  3. ZOPHREN                            /00955301/ [Concomitant]
     Active Substance: ONDANSETRON
     Indication: PRODUCT USED FOR UNKNOWN INDICATION
     Dosage: 4 MG, QD
     Route: 042
     Dates: start: 20170614
  4. HEPARIN [Concomitant]
     Active Substance: HEPARIN SODIUM
     Indication: PROPHYLAXIS
     Dosage: 720 IU, QD
     Route: 042
     Dates: start: 20170613, end: 20170731
  5. AMOXICILLIN. [Concomitant]
     Active Substance: AMOXICILLIN
     Indication: ANTIBIOTIC THERAPY
     Dosage: 400 MG, QD
     Route: 048
     Dates: start: 20170706
  6. ALDACTONE [Concomitant]
     Active Substance: SPIRONOLACTONE
     Indication: DIURETIC THERAPY
     Dosage: 10 MG, QD
     Route: 048
     Dates: start: 20170704, end: 20170724
  7. ZOVIRAX [Concomitant]
     Active Substance: ACYCLOVIR
     Indication: ANTIVIRAL TREATMENT
     Dosage: 600 MG, QD
     Route: 048
     Dates: start: 20170614
  8. CICLOSPORIN [Concomitant]
     Active Substance: CYCLOSPORINE
     Indication: PROPHYLAXIS AGAINST TRANSPLANT REJECTION
     Dosage: 22 MG, UNK
     Route: 042
     Dates: start: 20170619, end: 20170807
  9. COLIMYCIN                          /00013203/ [Concomitant]
     Indication: ANTIVIRAL TREATMENT
     Dosage: 500000 IU, QD
     Dates: start: 20170613
  10. NIDREL [Concomitant]
     Active Substance: NITRENDIPINE
     Indication: HYPERTENSION
     Dosage: 21 MG, QD
     Route: 048
     Dates: start: 20170620
  11. SECTRAL [Concomitant]
     Active Substance: ACEBUTOLOL HYDROCHLORIDE
     Indication: HYPERTENSION
     Dosage: 110 MG, UNK
     Route: 048
     Dates: start: 20170703
  12. ADRIGYL [Concomitant]
     Indication: PRODUCT USED FOR UNKNOWN INDICATION
     Dosage: 3 DROPS/DAY
     Dates: start: 20170613

REACTIONS (2)
  - Off label use [Unknown]
  - Graft versus host disease [Recovered/Resolved]

NARRATIVE: CASE EVENT DATE: 20170613
